FAERS Safety Report 21988594 (Version 1)
Quarter: 2023Q1

REPORT INFORMATION
  Report Type: Spontaneous
  Country: CN (occurrence: CN)
  Receive Date: 20230214
  Receipt Date: 20230214
  Transmission Date: 20230417
  Serious: Yes (Hospitalization, Other)
  Sender: FDA-Public Use
  Company Number: None

PATIENT
  Age: 76 Year
  Sex: Female
  Weight: 57 kg

DRUGS (4)
  1. LINEZOLID [Suspect]
     Active Substance: LINEZOLID
     Indication: Pneumonia staphylococcal
     Dosage: 600 MILLIGRAM, BID (EVERY 12 HOUR)
     Route: 042
  2. BUDESONIDE [Concomitant]
     Active Substance: BUDESONIDE
     Indication: Product used for unknown indication
     Dosage: 1 MILLIGRAM, BID (EVERY 12 HOUR) AEROSOL INHALATION
  3. Dihydroxypropyl theophylline [Concomitant]
     Indication: Pneumonia
     Dosage: 0.5 MILLIGRAM, QD (EVERY 1 DAY)
     Route: 042
  4. METFORMIN [Concomitant]
     Active Substance: METFORMIN HYDROCHLORIDE
     Indication: Type 2 diabetes mellitus
     Dosage: 0.5 GRAM, BID (EVERY 12 HOUR)
     Route: 065

REACTIONS (1)
  - Pancytopenia [Recovered/Resolved]
